FAERS Safety Report 18670976 (Version 1)
Quarter: 2020Q4

REPORT INFORMATION
  Report Type: Spontaneous
  Country: US (occurrence: US)
  Receive Date: 20201228
  Receipt Date: 20201228
  Transmission Date: 20210114
  Serious: No
  Sender: FDA-Public Use
  Company Number: US-CURIUM-202000362

PATIENT
  Age: 6 Decade
  Sex: Female

DRUGS (2)
  1. ULTRA-TECHNEKOW V4 [Suspect]
     Active Substance: TECHNETIUM TC-99M SODIUM PERTECHNETATE
     Indication: RADIOISOTOPE SCAN
     Route: 041
     Dates: start: 20200831, end: 20200831
  2. ULTRATAG RBC [Suspect]
     Active Substance: TECHNETIUM TC-99M RED BLOOD CELLS
     Indication: RADIOISOTOPE SCAN
     Route: 041
     Dates: start: 20200831, end: 20200831

REACTIONS (2)
  - Drug ineffective [Not Recovered/Not Resolved]
  - Radioisotope scan abnormal [Not Recovered/Not Resolved]

NARRATIVE: CASE EVENT DATE: 20200831
